FAERS Safety Report 5096101-8 (Version None)
Quarter: 2006Q3

REPORT INFORMATION
  Report Type: 
  Country: None (occurrence: None)
  Receive Date: 20060831
  Receipt Date: 20060817
  Transmission Date: 20061208
  Serious: Yes (Death, Life-Threatening, Hospitalization, Disabling)
  Sender: FDA-Public Use
  Company Number: 94080040

PATIENT
  Age: 13 Year
  Sex: Female
  Weight: 46.2669 kg

DRUGS (3)
  1. FELBATOL [Suspect]
     Indication: COMPLEX PARTIAL SEIZURES
     Dosage: 1600 MG BID (MG), PO
     Route: 048
     Dates: start: 19931027, end: 19940802
  2. RITALIN 10 MG TID (METHYLPHENIDATE HYDROCHLORIDE) [Concomitant]
  3. PREDNISONE TAB [Concomitant]

REACTIONS (4)
  - APLASTIC ANAEMIA [None]
  - BONE MARROW FAILURE [None]
  - IDIOPATHIC THROMBOCYTOPENIC PURPURA [None]
  - MENORRHAGIA [None]
